FAERS Safety Report 25620235 (Version 1)
Quarter: 2025Q3

REPORT INFORMATION
  Report Type: Spontaneous
  Country: US (occurrence: US)
  Receive Date: 20250730
  Receipt Date: 20250730
  Transmission Date: 20251020
  Serious: Yes (Other)
  Sender: AMNEAL
  Company Number: US-AMNEAL PHARMACEUTICALS-2025-AMRX-02745

PATIENT

DRUGS (1)
  1. LEVOTHYROXINE SODIUM [Suspect]
     Active Substance: LEVOTHYROXINE SODIUM
     Indication: Product used for unknown indication
     Dosage: 150 MCG OR MORE, DAILY
     Route: 065

REACTIONS (7)
  - Hypothyroidism [Unknown]
  - Dyspepsia [Unknown]
  - Muscular weakness [Unknown]
  - Gait disturbance [Unknown]
  - Fatigue [Unknown]
  - Product quality issue [Unknown]
  - Product substitution issue [Unknown]
